FAERS Safety Report 13814245 (Version 11)
Quarter: 2018Q3

REPORT INFORMATION
  Report Type: Spontaneous
  Country: US (occurrence: US)
  Receive Date: 20170731
  Receipt Date: 20180903
  Transmission Date: 20181010
  Serious: Yes (Congenital Anomaly, Other)
  Sender: FDA-Public Use
  Company Number: PHEH2017US023291

PATIENT
  Sex: Female

DRUGS (3)
  1. ZOFRAN [Suspect]
     Active Substance: ONDANSETRON HYDROCHLORIDE
     Indication: FOETAL EXPOSURE DURING PREGNANCY
     Route: 064
  2. ONDANSETRON [Suspect]
     Active Substance: ONDANSETRON
     Indication: FOETAL EXPOSURE DURING PREGNANCY
     Dosage: MOTHER^S DOSE: 4 MG, QD
     Route: 064
  3. ONDANSETRON [Suspect]
     Active Substance: ONDANSETRON
     Indication: FOETAL EXPOSURE DURING PREGNANCY
     Dosage: MOTHER^S DOSE: 4 MG, UNK
     Route: 064

REACTIONS (22)
  - Heart disease congenital [Unknown]
  - Pulmonary artery dilatation [Unknown]
  - Atelectasis [Unknown]
  - Anomalous pulmonary venous connection [Unknown]
  - Right-to-left cardiac shunt [Unknown]
  - Neonatal tachypnoea [Unknown]
  - Selective eating disorder [Unknown]
  - Right ventricular hypertrophy [Unknown]
  - Injury [Unknown]
  - Right ventricular dilatation [Unknown]
  - Tricuspid valve incompetence [Unknown]
  - Right atrial hypertrophy [Unknown]
  - Foetal exposure during pregnancy [Unknown]
  - Hypoxia [Unknown]
  - Cardiomegaly [Unknown]
  - Sinus arrhythmia [Unknown]
  - Atrial septal defect [Unknown]
  - Patent ductus arteriosus [Unknown]
  - Right atrial dilatation [Unknown]
  - Cyanosis neonatal [Unknown]
  - Pulmonary oedema [Unknown]
  - Lung hyperinflation [Unknown]
